FAERS Safety Report 4563005-6 (Version None)
Quarter: 2005Q1

REPORT INFORMATION
  Report Type: 
  Country: None (occurrence: None)
  Receive Date: 20050126
  Receipt Date: 20050114
  Transmission Date: 20050727
  Serious: Yes (Hospitalization)
  Sender: FDA-Public Use
  Company Number: 2005014113

PATIENT
  Sex: Male
  Weight: 63.05 kg

DRUGS (6)
  1. NEOSPORIN [Suspect]
     Indication: LACERATION
     Dosage: TINY AMOUNT BID PRN
  2. ATORVASTATIN (ATORVASTATIN) [Concomitant]
  3. WARFARIN SODIUM [Concomitant]
  4. CARDIAC THERAPY (CARDIAC THERAPY) [Concomitant]
  5. ALENDRONATE SODIUM [Concomitant]
  6. TERIPARATIDE (TERIPARATIDE) [Concomitant]

REACTIONS (4)
  - CHEST PAIN [None]
  - DYSPNOEA [None]
  - HEART RATE DECREASED [None]
  - NASAL DISCOMFORT [None]
